FAERS Safety Report 7205867-X (Version None)
Quarter: 2010Q4

REPORT INFORMATION
  Report Type: 
  Country: None (occurrence: None)
  Receive Date: 20101231
  Receipt Date: 20101217
  Transmission Date: 20110411
  Serious: Yes (Hospitalization, Disabling)
  Sender: FDA-Public Use
  Company Number: US-CELGENEUS-163-21880-10112815

PATIENT
  Sex: Female
  Weight: 53.572 kg

DRUGS (23)
  1. REVLIMID [Suspect]
     Indication: MULTIPLE MYELOMA
     Route: 048
     Dates: start: 20091101
  2. REVLIMID [Suspect]
     Route: 048
     Dates: start: 20100501, end: 20100801
  3. REVLIMID [Suspect]
     Route: 048
     Dates: start: 20100801, end: 20101119
  4. FLUIDS [Concomitant]
     Indication: DEHYDRATION
     Route: 051
     Dates: start: 20101101
  5. PRILOSEC [Concomitant]
     Route: 065
  6. LIBRAX [Concomitant]
     Route: 065
  7. CELEXA [Concomitant]
     Route: 065
  8. ALIGN [Concomitant]
     Route: 065
  9. DECADRON [Concomitant]
     Route: 065
  10. ARICEPT [Concomitant]
     Route: 065
  11. FENTANYL CITRATE [Concomitant]
     Route: 065
  12. MARINOL [Concomitant]
     Route: 065
  13. LIDOCAINE HYDROCHLORIDE IN PLASTIC CONTAINER [Concomitant]
     Route: 065
  14. IMODIUM [Concomitant]
     Route: 065
  15. ZOFRAN [Concomitant]
     Route: 065
  16. K-DUR [Concomitant]
     Route: 065
  17. VIVARIN [Concomitant]
     Route: 065
  18. NAPROSYN [Concomitant]
     Route: 065
  19. METHYLIN [Concomitant]
     Route: 065
  20. COMPAZINE [Concomitant]
     Route: 065
  21. ZOCOR [Concomitant]
     Route: 065
  22. VITAMIN B6 [Concomitant]
     Route: 065
  23. PROMETHAZINE [Concomitant]
     Route: 065

REACTIONS (6)
  - DECREASED APPETITE [None]
  - FAILURE TO THRIVE [None]
  - FATIGUE [None]
  - MUSCULAR WEAKNESS [None]
  - NAUSEA [None]
  - WEIGHT DECREASED [None]
